FAERS Safety Report 6719842-2 (Version None)
Quarter: 2010Q2

REPORT INFORMATION
  Report Type: 
  Country: None (occurrence: None)
  Receive Date: 20100510
  Receipt Date: 20100510
  Transmission Date: 20101027
  Serious: Yes (Other)
  Sender: FDA-Public Use
  Company Number: None

PATIENT
  Age: 66 Year
  Sex: Female
  Weight: 108.8633 kg

DRUGS (1)
  1. FLECAINIDE ACETATE [Suspect]
     Indication: ATRIAL FIBRILLATION
     Dosage: 100 MG BID PO
     Route: 048
     Dates: start: 20100416, end: 20100424

REACTIONS (3)
  - ATRIAL FIBRILLATION [None]
  - PRODUCT QUALITY ISSUE [None]
  - VENTRICULAR TACHYCARDIA [None]
